FAERS Safety Report 8934023 (Version 1)
Quarter: 2012Q4

REPORT INFORMATION
  Report Type: 
  Country: GB (occurrence: GB)
  Receive Date: 20121129
  Receipt Date: 20121129
  Transmission Date: 20130627
  Serious: Yes (Hospitalization)
  Sender: FDA-Public Use
  Company Number: GB-PFIZER INC-2012296886

PATIENT
  Age: 59 Year
  Sex: Female
  Weight: 85.2 kg

DRUGS (5)
  1. GENOTROPIN [Suspect]
     Dosage: 0.7 mg, 1x/day,7 injections/week
     Route: 058
     Dates: start: 20040205
  2. DESMOPRESSIN [Concomitant]
     Indication: ADH DECREASED
     Dosage: UNK
     Dates: start: 19930713
  3. HYDROCORTISONE [Concomitant]
     Indication: ACTH DECREASED
     Dosage: UNK
     Dates: start: 20000211
  4. THYROXINE [Concomitant]
     Indication: HYPOTHYROIDISM
     Dosage: UNK
     Dates: start: 19930713
  5. SIMVASTATIN [Concomitant]
     Indication: HYPERCHOLESTERAEMIA
     Dosage: UNK
     Dates: start: 20020524

REACTIONS (2)
  - Eye disorder [Unknown]
  - Diplopia [Unknown]
